FAERS Safety Report 5501515-5 (Version None)
Quarter: 2007Q4

REPORT INFORMATION
  Report Type: 
  Country: None (occurrence: None)
  Receive Date: 20071030
  Receipt Date: 20071025
  Transmission Date: 20080405
  Serious: Yes (Life-Threatening)
  Sender: FDA-Public Use
  Company Number: PHHO2007FR17844

PATIENT
  Age: 51 Year
  Sex: Female
  Weight: 75 kg

DRUGS (6)
  1. CGP 57148B [Suspect]
     Indication: ACUTE LYMPHOCYTIC LEUKAEMIA
     Dosage: 400 MG, BID
     Route: 048
     Dates: start: 20070927
  2. TAZOCILLINE [Concomitant]
  3. HIPAZIN [Concomitant]
  4. PLITICAN [Concomitant]
  5. ZOFRAN [Concomitant]
  6. SOTALOL HCL [Concomitant]

REACTIONS (6)
  - APLASIA [None]
  - INTUBATION [None]
  - MECHANICAL VENTILATION [None]
  - NEUTROPENIA [None]
  - RESPIRATORY FAILURE [None]
  - SEPSIS [None]
